FAERS Safety Report 17704446 (Version 2)
Quarter: 2020Q2

REPORT INFORMATION
  Report Type: Spontaneous
  Country: ES (occurrence: ES)
  Receive Date: 20200424
  Receipt Date: 20200608
  Transmission Date: 20200714
  Serious: Yes (Other)
  Sender: FDA-Public Use
  Company Number: ES-MYLANLABS-2020M1039883

PATIENT
  Age: 63 Year
  Sex: Male

DRUGS (2)
  1. OLMESARTAN MYLAN [Suspect]
     Active Substance: OLMESARTAN
     Indication: HYPERTENSION
     Dosage: 1 DOSAGE FORM, Q2D (EVERY 2 DAYS)
     Route: 065
  2. OLMESARTAN MYLAN [Suspect]
     Active Substance: OLMESARTAN
     Dosage: 1 DOSAGE FORM, QD
     Dates: end: 20200414

REACTIONS (4)
  - Back pain [Recovered/Resolved]
  - Blood urine present [Recovered/Resolved]
  - Blood pressure decreased [Recovered/Resolved]
  - Haemorrhage urinary tract [Recovered/Resolved]

NARRATIVE: CASE EVENT DATE: 201901
